FAERS Safety Report 9176590 (Version 1)
Quarter: 2013Q1

REPORT INFORMATION
  Report Type: Spontaneous
  Country: US (occurrence: None)
  Receive Date: 20130320
  Receipt Date: 20130320
  Transmission Date: 20140127
  Serious: Yes (Hospitalization)
  Sender: FDA-Public Use
  Company Number: None

PATIENT
  Age: 82 Year
  Sex: Female

DRUGS (1)
  1. XARELTO -RIVAROXABAN- 20 MG JANSSEN PHARMACEUTICALS [Suspect]
     Route: 048

REACTIONS (1)
  - Haemorrhage intracranial [None]
